FAERS Safety Report 6721333-X (Version None)
Quarter: 2010Q2

REPORT INFORMATION
  Report Type: 
  Country: None (occurrence: None)
  Receive Date: 20100512
  Receipt Date: 20100503
  Transmission Date: 20101027
  Serious: Yes (Hospitalization, Other)
  Sender: FDA-Public Use
  Company Number: PHHY2010BR28989

PATIENT
  Sex: Female

DRUGS (4)
  1. FORASEQ [Suspect]
     Dosage: 2 CAPSULES DAILY
  2. FORASEQ [Suspect]
     Dosage: 1 CAPSULE DAILY
  3. FORASEQ [Suspect]
     Dosage: 2 CAPSULES DAILY
  4. PREDNISONE [Concomitant]

REACTIONS (6)
  - BLOOD DISORDER [None]
  - DRUG INEFFECTIVE [None]
  - HAEMORRHAGE SUBCUTANEOUS [None]
  - HYPERAESTHESIA [None]
  - INCORRECT DOSE ADMINISTERED [None]
  - SPINAL OPERATION [None]
